FAERS Safety Report 8483186-1 (Version None)
Quarter: 2012Q3

REPORT INFORMATION
  Report Type: 
  Country: None (occurrence: None)
  Receive Date: 20120702
  Receipt Date: 20120628
  Transmission Date: 20120928
  Serious: Yes (Other)
  Sender: FDA-Public Use
  Company Number: PHHY2012BR045541

PATIENT
  Sex: Male

DRUGS (1)
  1. DIOVAN HCT [Suspect]
     Dosage: 160/25MG, AT THE MORNING

REACTIONS (3)
  - BLOOD PRESSURE INCREASED [None]
  - DIABETES MELLITUS [None]
  - MOOD ALTERED [None]
